FAERS Safety Report 7201414-7 (Version None)
Quarter: 2010Q4

REPORT INFORMATION
  Report Type: 
  Country: None (occurrence: None)
  Receive Date: 20101229
  Receipt Date: 20101224
  Transmission Date: 20110411
  Serious: Yes (Death)
  Sender: FDA-Public Use
  Company Number: JP-ASTELLAS-2010JP007577

PATIENT
  Age: 81 Year
  Sex: Male

DRUGS (1)
  1. TACROLIMUS [Suspect]
     Dosage: UNK
     Route: 048
     Dates: start: 20100921

REACTIONS (1)
  - STEVENS-JOHNSON SYNDROME [None]
